FAERS Safety Report 15537035 (Version 1)
Quarter: 2018Q4

REPORT INFORMATION
  Report Type: Spontaneous
  Country: US (occurrence: US)
  Receive Date: 20181022
  Receipt Date: 20181022
  Transmission Date: 20190205
  Serious: Yes (Other)
  Sender: FDA-Public Use
  Company Number: US-JNJFOC-20181027812

PATIENT
  Age: 41 Year
  Sex: Male

DRUGS (2)
  1. INVOKANA [Suspect]
     Active Substance: CANAGLIFLOZIN
     Indication: TYPE 2 DIABETES MELLITUS
     Route: 048
     Dates: start: 20170504
  2. INVOKANA [Suspect]
     Active Substance: CANAGLIFLOZIN
     Indication: TYPE 2 DIABETES MELLITUS
     Route: 048
     Dates: start: 20161118, end: 20170503

REACTIONS (4)
  - Osteomyelitis [Unknown]
  - Wound [Unknown]
  - Skin ulcer [Unknown]
  - Toe amputation [Unknown]

NARRATIVE: CASE EVENT DATE: 201703
